FAERS Safety Report 4536517-9 (Version None)
Quarter: 2004Q4

REPORT INFORMATION
  Report Type: 
  Country: None (occurrence: None)
  Receive Date: 20041223
  Receipt Date: 20041214
  Transmission Date: 20050328
  Serious: Yes (Hospitalization)
  Sender: FDA-Public Use
  Company Number: US-JNJFOC-20041002148

PATIENT
  Sex: Female
  Weight: 112.04 kg

DRUGS (10)
  1. REMICADE [Suspect]
     Indication: RHEUMATOID ARTHRITIS
     Route: 042
  2. METHOTREXATE [Concomitant]
  3. LOPRESSOR [Concomitant]
  4. LOTREL [Concomitant]
  5. LOTREL [Concomitant]
  6. DARVON [Concomitant]
  7. BUMETANIDE [Concomitant]
     Indication: DIURETIC THERAPY
  8. FOLIC ACID [Concomitant]
  9. NEURONTIN [Concomitant]
  10. INDETHCIN [Concomitant]

REACTIONS (7)
  - ASTHENIA [None]
  - BURNING SENSATION [None]
  - HYPERHIDROSIS [None]
  - HYPOAESTHESIA [None]
  - INTERVERTEBRAL DISC DISPLACEMENT [None]
  - PARAESTHESIA [None]
  - SPINAL COLUMN STENOSIS [None]
